FAERS Safety Report 5506658-8 (Version None)
Quarter: 2007Q4

REPORT INFORMATION
  Report Type: 
  Country: None (occurrence: None)
  Receive Date: 20071105
  Receipt Date: 20071023
  Transmission Date: 20080405
  Serious: Yes (Hospitalization)
  Sender: FDA-Public Use
  Company Number: GB-RANBAXY-2007RR-10989

PATIENT

DRUGS (5)
  1. TERBINAFINE HCL [Suspect]
     Indication: TINEA PEDIS
     Dosage: 250 MG, UNK
     Route: 048
     Dates: start: 20070825, end: 20070926
  2. CLOFIBRATE [Concomitant]
     Dosage: 100 MG, UNK
     Route: 048
  3. GLIMEPIRIDE [Concomitant]
     Dosage: 2 MG, UNK
     Route: 048
  4. METFORMIN 850MG TABLETS [Concomitant]
     Dosage: 850 MG, UNK
     Route: 048
  5. RAMIPRIL [Concomitant]
     Dosage: 1.25 MG, UNK
     Route: 048

REACTIONS (3)
  - PSORIASIS [None]
  - SKIN EXFOLIATION [None]
  - VASCULITIC RASH [None]
